FAERS Safety Report 16846494 (Version 4)
Quarter: 2022Q3

REPORT INFORMATION
  Report Type: Spontaneous
  Country: US (occurrence: None)
  Receive Date: 20190924
  Receipt Date: 20220909
  Transmission Date: 20221027
  Serious: Yes (Hospitalization, Other)
  Sender: FDA-Public Use
  Company Number: 2019SF32010

PATIENT
  Age: 68 Year
  Sex: Male
  Weight: 113.4 kg

DRUGS (73)
  1. FARXIGA [Suspect]
     Active Substance: DAPAGLIFLOZIN PROPANEDIOL
     Indication: Type 2 diabetes mellitus
     Route: 048
     Dates: start: 20160719
  2. FARXIGA [Suspect]
     Active Substance: DAPAGLIFLOZIN PROPANEDIOL
     Indication: Weight decreased
     Route: 048
     Dates: start: 20160719
  3. FARXIGA [Suspect]
     Active Substance: DAPAGLIFLOZIN PROPANEDIOL
     Indication: Blood pressure decreased
     Route: 048
     Dates: start: 20160719
  4. FARXIGA [Suspect]
     Active Substance: DAPAGLIFLOZIN PROPANEDIOL
     Indication: Type 2 diabetes mellitus
     Route: 048
     Dates: start: 20170720
  5. FARXIGA [Suspect]
     Active Substance: DAPAGLIFLOZIN PROPANEDIOL
     Indication: Weight decreased
     Route: 048
     Dates: start: 20170720
  6. FARXIGA [Suspect]
     Active Substance: DAPAGLIFLOZIN PROPANEDIOL
     Indication: Blood pressure decreased
     Route: 048
     Dates: start: 20170720
  7. FARXIGA [Suspect]
     Active Substance: DAPAGLIFLOZIN PROPANEDIOL
     Indication: Type 2 diabetes mellitus
     Dosage: GENERIC
     Route: 048
     Dates: start: 20180623
  8. FARXIGA [Suspect]
     Active Substance: DAPAGLIFLOZIN PROPANEDIOL
     Indication: Weight decreased
     Dosage: GENERIC
     Route: 048
     Dates: start: 20180623
  9. FARXIGA [Suspect]
     Active Substance: DAPAGLIFLOZIN PROPANEDIOL
     Indication: Blood pressure decreased
     Dosage: GENERIC
     Route: 048
     Dates: start: 20180623
  10. FARXIGA [Suspect]
     Active Substance: DAPAGLIFLOZIN PROPANEDIOL
     Indication: Type 2 diabetes mellitus
     Route: 048
     Dates: start: 2016, end: 2018
  11. FARXIGA [Suspect]
     Active Substance: DAPAGLIFLOZIN PROPANEDIOL
     Indication: Weight decreased
     Route: 048
     Dates: start: 2016, end: 2018
  12. FARXIGA [Suspect]
     Active Substance: DAPAGLIFLOZIN PROPANEDIOL
     Indication: Blood pressure decreased
     Route: 048
     Dates: start: 2016, end: 2018
  13. AMLODIPINE [Concomitant]
     Active Substance: AMLODIPINE BESYLATE
     Indication: Blood pressure measurement
     Dates: start: 20180623
  14. ATORVASTATIN [Concomitant]
     Active Substance: ATORVASTATIN
     Indication: Blood cholesterol
  15. COLACE [Concomitant]
     Active Substance: DOCUSATE SODIUM
  16. GLUCAGON [Concomitant]
     Active Substance: GLUCAGON
  17. HUMALOG [Concomitant]
     Active Substance: INSULIN LISPRO
     Dates: start: 20180627
  18. MIRALAX [Concomitant]
     Active Substance: POLYETHYLENE GLYCOL 3350
  19. PERCOCET [Concomitant]
     Active Substance: ACETAMINOPHEN\OXYCODONE HYDROCHLORIDE
  20. SODIUM CHLORIDE [Concomitant]
     Active Substance: SODIUM CHLORIDE
     Dates: start: 20180627
  21. TYLENOL [Concomitant]
     Active Substance: ACETAMINOPHEN
  22. ASPIRIN [Concomitant]
     Active Substance: ASPIRIN
     Indication: Blood pressure measurement
  23. LISINOPRIL [Concomitant]
     Active Substance: LISINOPRIL
     Indication: Blood pressure measurement
  24. HYDROCHLOROTHIAZIDE [Concomitant]
     Active Substance: HYDROCHLOROTHIAZIDE
  25. GLIPIZIDE [Concomitant]
     Active Substance: GLIPIZIDE
     Indication: Diabetes mellitus
  26. MORPHINE [Concomitant]
     Active Substance: MORPHINE
  27. PIPERACILLIN [Concomitant]
     Active Substance: PIPERACILLIN
  28. METFORMIN [Concomitant]
     Active Substance: METFORMIN HYDROCHLORIDE
     Indication: Diabetes mellitus
     Dates: start: 20180623
  29. CLINDAMYCIN [Concomitant]
     Active Substance: CLINDAMYCIN
     Dates: start: 20180623
  30. PROPOFOL [Concomitant]
     Active Substance: PROPOFOL
     Dates: start: 20180626
  31. VANCOMYCIN [Concomitant]
     Active Substance: VANCOMYCIN
     Dates: start: 20180625
  32. IOPAMIDOL [Concomitant]
     Active Substance: IOPAMIDOL
  33. IBUPROFEN [Concomitant]
     Active Substance: IBUPROFEN
     Dates: start: 20180623
  34. ZOFRAN [Concomitant]
     Active Substance: ONDANSETRON HYDROCHLORIDE
  35. FENTANYL [Concomitant]
     Active Substance: FENTANYL
     Dates: start: 20180625
  36. ZOSYN [Concomitant]
     Active Substance: PIPERACILLIN SODIUM\TAZOBACTAM SODIUM
  37. SENOKOT [Concomitant]
     Active Substance: SENNOSIDES
  38. PEPCID [Concomitant]
     Active Substance: FAMOTIDINE
     Dates: start: 20180627
  39. MIDAZOLAM [Concomitant]
     Active Substance: MIDAZOLAM
  40. ROCURONIUM [Concomitant]
     Active Substance: ROCURONIUM BROMIDE
  41. TAZOBACTAM [Concomitant]
     Active Substance: TAZOBACTAM
  42. FUROSEMIDE [Concomitant]
     Active Substance: FUROSEMIDE
     Dates: start: 20180627
  43. MUPIROCIN [Concomitant]
     Active Substance: MUPIROCIN
  44. NICOTINE [Concomitant]
     Active Substance: NICOTINE
  45. PROTHROMBIN [Concomitant]
     Active Substance: PROTHROMBIN
  46. LACTIC ACID [Concomitant]
     Active Substance: LACTIC ACID
  47. MAGNESIUM [Concomitant]
     Active Substance: MAGNESIUM
  48. UNSPECIFIED INGREDIENT [Concomitant]
     Active Substance: UNSPECIFIED INGREDIENT
  49. HEPARIN [Concomitant]
     Active Substance: HEPARIN SODIUM
  50. POTASSIUM CHLORIDE [Concomitant]
     Active Substance: POTASSIUM CHLORIDE
  51. ALBUTEROL\IPRATROPIUM [Concomitant]
     Active Substance: ALBUTEROL\IPRATROPIUM
  52. LIDOCAINE [Concomitant]
     Active Substance: LIDOCAINE
  53. WHITE PETROLATUM-MINERAL OIL [Concomitant]
  54. AMOXICILLIN\CLAVULANIC ACID [Concomitant]
     Active Substance: AMOXICILLIN\CLAVULANIC ACID
  55. HYDRALAZINE [Concomitant]
     Active Substance: HYDRALAZINE HYDROCHLORIDE
  56. OXYCODONE [Concomitant]
     Active Substance: OXYCODONE
  57. FINASTERIDE [Concomitant]
     Active Substance: FINASTERIDE
  58. NYSTATIN [Concomitant]
     Active Substance: NYSTATIN
  59. CEFAZOLIN [Concomitant]
     Active Substance: CEFAZOLIN
  60. SUGAMMADEX [Concomitant]
     Active Substance: SUGAMMADEX
  61. ONDANSETRON [Concomitant]
     Active Substance: ONDANSETRON
  62. ENOXAPARIN [Concomitant]
     Active Substance: ENOXAPARIN
  63. BUPIVACAINE [Concomitant]
     Active Substance: BUPIVACAINE
  64. INSULIN NOS [Concomitant]
     Active Substance: INSULIN NOS
  65. STARLIX [Concomitant]
     Active Substance: NATEGLINIDE
  66. PNEUMOVAX 23 [Concomitant]
     Active Substance: PNEUMOCOCCAL VACCINE, POLYVALENT 23
  67. PREVNAR [Concomitant]
     Active Substance: PNEUMOCOCCAL 7-VALENT CONJUGATE VACCINE (DIPHTHERIA CRM197 PROTEIN)
  68. ZOCOR [Concomitant]
     Active Substance: SIMVASTATIN
  69. CIPROFLOXACIN [Concomitant]
     Active Substance: CIPROFLOXACIN
  70. NATEGLINIDE [Concomitant]
     Active Substance: NATEGLINIDE
     Indication: Diabetes mellitus
  71. JARDIANCE [Concomitant]
     Active Substance: EMPAGLIFLOZIN
     Indication: Diabetes mellitus
  72. DOCUSATE [Concomitant]
     Active Substance: DOCUSATE
  73. GLUCOTROL [Concomitant]
     Active Substance: GLIPIZIDE

REACTIONS (7)
  - Fournier^s gangrene [Unknown]
  - Sepsis [Unknown]
  - Scrotal abscess [Unknown]
  - Perirectal abscess [Unknown]
  - Necrotising fasciitis [Unknown]
  - Fat necrosis [Unknown]
  - Perineal necrosis [Unknown]

NARRATIVE: CASE EVENT DATE: 20180623
